FAERS Safety Report 7940547-4 (Version None)
Quarter: 2011Q4

REPORT INFORMATION
  Report Type: 
  Country: None (occurrence: None)
  Receive Date: 20111108
  Receipt Date: 20100924
  Transmission Date: 20120403
  Serious: Yes (Other)
  Sender: FDA-Public Use
  Company Number: PHHY2010US64249

PATIENT
  Sex: Male

DRUGS (2)
  1. ZOMETA [Suspect]
     Indication: METASTASES TO BONE
     Dosage: INTRAVENOUS
     Route: 042
  2. ZOMETA [Suspect]
     Indication: PROSTATE CANCER
     Dosage: INTRAVENOUS
     Route: 042

REACTIONS (2)
  - SURGERY [None]
  - OSTEONECROSIS [None]
